FAERS Safety Report 23361033 (Version 1)
Quarter: 2024Q1

REPORT INFORMATION
  Report Type: Spontaneous
  Country: US (occurrence: None)
  Receive Date: 20240102
  Receipt Date: 20240102
  Transmission Date: 20240409
  Serious: No
  Sender: FDA-Public Use
  Company Number: None

PATIENT

DRUGS (2)
  1. HUMALOG MIX75/25 KWIKPEN [Suspect]
     Active Substance: INSULIN LISPRO
     Dosage: OTHER STRENGTH : 100 )IU)/ML;?
     Route: 058
  2. INSULIN LISPRO [Suspect]
     Active Substance: INSULIN LISPRO
     Dosage: OTHER STRENGTH : 100 (IU)/ML;?
     Route: 058

REACTIONS (2)
  - Product label confusion [None]
  - Product packaging confusion [None]
